FAERS Safety Report 25036249 (Version 1)
Quarter: 2025Q1

REPORT INFORMATION
  Report Type: Spontaneous
  Country: US (occurrence: US)
  Receive Date: 20250304
  Receipt Date: 20250304
  Transmission Date: 20250409
  Serious: Yes (Other)
  Sender: PFIZER
  Company Number: US-PFIZER INC-PV202500025482

PATIENT
  Age: 61 Year
  Sex: Female

DRUGS (5)
  1. VANCOMYCIN HYDROCHLORIDE [Suspect]
     Active Substance: VANCOMYCIN HYDROCHLORIDE
     Indication: Arthritis infective
     Route: 042
  2. GENTAMICIN [Concomitant]
     Active Substance: GENTAMICIN
     Indication: Arthritis infective
  3. CEFAZOLIN [Concomitant]
     Active Substance: CEFAZOLIN
     Indication: Arthritis infective
  4. CEFTRIAXONE [Concomitant]
     Active Substance: CEFTRIAXONE
     Indication: Arthritis infective
  5. CEFOTAXIME [Concomitant]
     Active Substance: CEFOTAXIME SODIUM
     Indication: Arthritis infective

REACTIONS (1)
  - Autoimmune haemolytic anaemia [Recovering/Resolving]
